FAERS Safety Report 18777482 (Version 20)
Quarter: 2025Q2

REPORT INFORMATION
  Report Type: Report from Study
  Country: US (occurrence: US)
  Receive Date: 20210123
  Receipt Date: 20250520
  Transmission Date: 20250717
  Serious: Yes (Hospitalization, Other)
  Sender: TAKEDA
  Company Number: US-TAKEDA-2021TUS003243

PATIENT
  Sex: Female
  Weight: 106 kg

DRUGS (40)
  1. HUMAN IMMUNOGLOBULIN G [Suspect]
     Active Substance: HUMAN IMMUNOGLOBULIN G
     Indication: Immunodeficiency common variable
     Dosage: 25 GRAM, 1/WEEK
     Dates: start: 20171101
  2. HUMAN IMMUNOGLOBULIN G [Suspect]
     Active Substance: HUMAN IMMUNOGLOBULIN G
     Indication: Primary immunodeficiency syndrome
     Dosage: 22 GRAM, 1/WEEK
     Dates: start: 20171108
  3. HUMAN IMMUNOGLOBULIN G [Suspect]
     Active Substance: HUMAN IMMUNOGLOBULIN G
     Dosage: 25 GRAM, 1/WEEK
  4. PREDNISONE [Suspect]
     Active Substance: PREDNISONE
     Indication: Product used for unknown indication
  5. METOPROLOL [Suspect]
     Active Substance: METOPROLOL
     Indication: Product used for unknown indication
  6. DIPHENHYDRAMINE [Concomitant]
     Active Substance: DIPHENHYDRAMINE
  7. FUROSEMIDE [Concomitant]
     Active Substance: FUROSEMIDE
  8. ELIQUIS [Concomitant]
     Active Substance: APIXABAN
  9. COENZYME Q10 [Concomitant]
     Active Substance: DIETARY SUPPLEMENT\UBIDECARENONE
  10. EPINEPHRINE [Concomitant]
     Active Substance: EPINEPHRINE
  11. PROTONIX [Concomitant]
     Active Substance: PANTOPRAZOLE SODIUM
  12. MAGNESIUM [Concomitant]
     Active Substance: MAGNESIUM
  13. ZYRTEC [Concomitant]
     Active Substance: CETIRIZINE HYDROCHLORIDE
  14. KLOR-CON M20 [Concomitant]
     Active Substance: POTASSIUM CHLORIDE
  15. IRON [Concomitant]
     Active Substance: IRON
  16. ACETAMINOPHEN [Concomitant]
     Active Substance: ACETAMINOPHEN
  17. AMOXICILLIN [Concomitant]
     Active Substance: AMOXICILLIN
  18. HYDROCORTISONE [Concomitant]
     Active Substance: HYDROCORTISONE
  19. SINGULAIR [Concomitant]
     Active Substance: MONTELUKAST SODIUM
  20. LEXAPRO [Concomitant]
     Active Substance: ESCITALOPRAM OXALATE
  21. VITAMIN C [Concomitant]
     Active Substance: ASCORBIC ACID
  22. VITAMIN D3 [Concomitant]
     Active Substance: CHOLECALCIFEROL
  23. VITAMIN E [Concomitant]
     Active Substance: .ALPHA.-TOCOPHEROL
  24. XIIDRA [Concomitant]
     Active Substance: LIFITEGRAST
  25. METHOTREXATE [Concomitant]
     Active Substance: METHOTREXATE
  26. FOLIC ACID [Concomitant]
     Active Substance: FOLIC ACID
  27. ZOLPIDEM [Concomitant]
     Active Substance: ZOLPIDEM TARTRATE
  28. METAXALL [Concomitant]
     Active Substance: METAXALONE
  29. KLOR-CON [Concomitant]
     Active Substance: POTASSIUM CHLORIDE
  30. Lmx [Concomitant]
  31. DIPHENHYDRAMINE HYDROCHLORIDE [Concomitant]
     Active Substance: DIPHENHYDRAMINE HYDROCHLORIDE
  32. TRAMADOL HCL [Concomitant]
     Active Substance: TRAMADOL HYDROCHLORIDE
  33. PROPRANOLOL HYDROCHLORIDE [Concomitant]
     Active Substance: PROPRANOLOL HYDROCHLORIDE
  34. CYANOCOBALAMIN [Concomitant]
     Active Substance: CYANOCOBALAMIN
  35. LYRICA [Concomitant]
     Active Substance: PREGABALIN
  36. MAGNESIUM OXIDE [Concomitant]
     Active Substance: MAGNESIUM OXIDE
  37. KEPPRA [Concomitant]
     Active Substance: LEVETIRACETAM
  38. BUSPIRONE HCL [Concomitant]
     Active Substance: BUSPIRONE HYDROCHLORIDE
  39. POTASSIUM [Concomitant]
     Active Substance: POTASSIUM
  40. TOPIRAMATE [Concomitant]
     Active Substance: TOPIRAMATE

REACTIONS (21)
  - Bronchitis [Unknown]
  - Wound infection [Unknown]
  - Kidney infection [Unknown]
  - Cystitis [Unknown]
  - Lower respiratory tract infection [Unknown]
  - Atrial fibrillation [Unknown]
  - Pneumonia aspiration [Unknown]
  - Post procedural infection [Unknown]
  - Atrial flutter [Unknown]
  - Localised infection [Unknown]
  - Drug hypersensitivity [Unknown]
  - Injection site irritation [Unknown]
  - Illness [Unknown]
  - Vitamin B complex deficiency [Unknown]
  - Inappropriate schedule of product administration [Unknown]
  - Postoperative wound infection [Unknown]
  - Weight increased [Unknown]
  - Fungal infection [Unknown]
  - Sinusitis [Unknown]
  - Swelling [Unknown]
  - Product dose omission issue [Unknown]
